FAERS Safety Report 19450977 (Version 1)
Quarter: 2021Q2

REPORT INFORMATION
  Report Type: Spontaneous
  Country: US (occurrence: US)
  Receive Date: 20210623
  Receipt Date: 20210623
  Transmission Date: 20210717
  Serious: No
  Sender: FDA-Public Use
  Company Number: US-AMGEN-USASP2021094251

PATIENT
  Sex: Female

DRUGS (7)
  1. LEFLUNOMIDE. [Concomitant]
     Active Substance: LEFLUNOMIDE
     Dosage: 10 MILLIGRAM
     Route: 065
  2. LISINOPRIL. [Concomitant]
     Active Substance: LISINOPRIL
     Dosage: 20 MILLIGRAM
     Route: 065
  3. TRAMADOL. [Concomitant]
     Active Substance: TRAMADOL
     Dosage: 50 MILLIGRAM
     Route: 065
  4. ENBREL [Suspect]
     Active Substance: ETANERCEPT
     Indication: PRODUCT USED FOR UNKNOWN INDICATION
     Dosage: UNK
     Route: 065
  5. IBUPROFEN. [Concomitant]
     Active Substance: IBUPROFEN
     Dosage: 800 MILLIGRAM
     Route: 065
  6. RITUXAN [Concomitant]
     Active Substance: RITUXIMAB
     Dosage: 500 MG/50 ML
     Route: 065
  7. PREDNISONE. [Concomitant]
     Active Substance: PREDNISONE
     Dosage: 40 MILLIGRAM; 10 MILLIGRAM
     Route: 065

REACTIONS (1)
  - Drug ineffective [Unknown]
